FAERS Safety Report 6943723-2 (Version None)
Quarter: 2010Q3

REPORT INFORMATION
  Report Type: 
  Country: None (occurrence: None)
  Receive Date: 20100826
  Receipt Date: 20100820
  Transmission Date: 20110219
  Serious: Yes (Hospitalization)
  Sender: FDA-Public Use
  Company Number: A0785125A

PATIENT
  Age: 61 Year
  Sex: Male

DRUGS (6)
  1. AVANDIA [Suspect]
     Dosage: 4MG PER DAY
     Route: 048
     Dates: start: 20000907, end: 20090707
  2. INSULIN [Concomitant]
  3. MONOPRIL [Concomitant]
  4. ZOCOR [Concomitant]
  5. ALLOPURINOL [Concomitant]
  6. ZANTAC [Concomitant]

REACTIONS (1)
  - SILENT MYOCARDIAL INFARCTION [None]
